FAERS Safety Report 10659218 (Version 2)
Quarter: 2015Q1

REPORT INFORMATION
  Report Type: Spontaneous
  Country: JP (occurrence: JP)
  Receive Date: 20141217
  Receipt Date: 20150117
  Transmission Date: 20150720
  Serious: Yes (Hospitalization, Other)
  Sender: FDA-Public Use
  Company Number: PHHY2014JP164716

PATIENT
  Age: 94 Year
  Sex: Female

DRUGS (1)
  1. EXELON PATCH [Suspect]
     Active Substance: RIVASTIGMINE
     Indication: DEMENTIA ALZHEIMER^S TYPE
     Dosage: 9.5 MG/24 H (18 MG RIVASTIGMINE BASE)
     Route: 062

REACTIONS (3)
  - Dysphagia [Unknown]
  - Anger [Unknown]
  - Seizure [Unknown]
